FAERS Safety Report 7830349-1 (Version None)
Quarter: 2011Q4

REPORT INFORMATION
  Report Type: 
  Country: None (occurrence: None)
  Receive Date: 20111021
  Receipt Date: 20111019
  Transmission Date: 20120403
  Serious: No
  Sender: FDA-Public Use
  Company Number: US-B.I. PHARMACEUTICALS,INC./RIDGEFIELD-2011-BP-23095BP

PATIENT
  Age: 50 Year
  Sex: Female
  Weight: 165.56 kg

DRUGS (10)
  1. LASIX [Concomitant]
  2. CYMBALTA [Suspect]
  3. CRESTOR [Concomitant]
  4. XANAX [Concomitant]
  5. PRADAXA [Suspect]
     Indication: ATRIAL FIBRILLATION
     Dosage: 300 MG
     Dates: start: 20110701
  6. TYLENOL W/ CODEINE [Concomitant]
  7. METFORMIN HCL [Concomitant]
  8. SINGULAIR [Concomitant]
  9. LEVEMIR [Concomitant]
  10. AMBIEN [Concomitant]

REACTIONS (3)
  - MYALGIA [None]
  - ARTHRALGIA [None]
  - GAIT DISTURBANCE [None]
